FAERS Safety Report 11908306 (Version 10)
Quarter: 2019Q4

REPORT INFORMATION
  Report Type: Spontaneous
  Country: US (occurrence: US)
  Receive Date: 20160111
  Receipt Date: 20191227
  Transmission Date: 20200122
  Serious: Yes (Hospitalization, Other)
  Sender: FDA-Public Use
  Company Number: US-PFIZER INC-2016006676

PATIENT
  Age: 76 Year
  Sex: Female
  Weight: 59 kg

DRUGS (4)
  1. SUTENT [Suspect]
     Active Substance: SUNITINIB MALATE
     Dosage: UNK
     Route: 048
  2. SUTENT [Suspect]
     Active Substance: SUNITINIB MALATE
     Dosage: 12.5 MG, 1 WEEK ON AND ONE WEEK OFF
  3. SUTENT [Suspect]
     Active Substance: SUNITINIB MALATE
     Indication: PANCREATIC NEUROENDOCRINE TUMOUR METASTATIC
     Dosage: 12.5 MG, 2X/DAY (2 A DAY)
     Route: 048
     Dates: start: 201103
  4. SUTENT [Suspect]
     Active Substance: SUNITINIB MALATE
     Dosage: 12.5 MG, CYCLIC (BID, 4 WEEKS ON, 2 WEEKS OFF)
     Route: 048
     Dates: start: 20160107

REACTIONS (7)
  - Thinking abnormal [Unknown]
  - Malaise [Not Recovered/Not Resolved]
  - Dysphonia [Recovered/Resolved]
  - Nasopharyngitis [Unknown]
  - Thyroid disorder [Unknown]
  - Fall [Unknown]
  - Lower respiratory tract infection [Not Recovered/Not Resolved]
